FAERS Safety Report 5406753-8 (Version None)
Quarter: 2007Q3

REPORT INFORMATION
  Report Type: 
  Country: None (occurrence: None)
  Receive Date: 20070807
  Receipt Date: 20070803
  Transmission Date: 20080115
  Serious: Yes (Death, Other)
  Sender: FDA-Public Use
  Company Number: PHNR2007AU01427

PATIENT
  Age: 30 Year
  Sex: Male

DRUGS (3)
  1. CITALOPRAM HYDROBROMIDE [Suspect]
     Dosage: 60 MG DAILY
     Route: 048
  2. CELECOXIB [Suspect]
     Dosage: 600 MG DAILY
  3. CLOZAPINE [Suspect]
     Indication: SCHIZOPHRENIA
     Dosage: 500 MG DAILY
     Route: 048
     Dates: start: 20001201, end: 20010903

REACTIONS (8)
  - ARTERIOSCLEROSIS CORONARY ARTERY [None]
  - ASTHMA [None]
  - CYANOSIS [None]
  - DEEP VEIN THROMBOSIS [None]
  - DRUG TOXICITY [None]
  - DYSPNOEA [None]
  - PULMONARY EMBOLISM [None]
  - SYNCOPE [None]
